FAERS Safety Report 21283977 (Version 1)
Quarter: 2022Q3

REPORT INFORMATION
  Report Type: Spontaneous
  Country: US (occurrence: None)
  Receive Date: 20220901
  Receipt Date: 20220901
  Transmission Date: 20221027
  Serious: No
  Sender: FDA-Public Use
  Company Number: None

PATIENT
  Age: 61 Year
  Sex: Female

DRUGS (2)
  1. SIMPONI [Suspect]
     Active Substance: GOLIMUMAB
     Indication: Colitis ulcerative
     Dosage: INJECT  200MG SUBCUTANEOUSLY ON  ON DAY 1, THEN 10MG ON ON DAY 15 THEN 100MMG EVERY 4  WEEKS AS DIR
     Route: 058
     Dates: start: 202206
  2. SIMPONI [Suspect]
     Active Substance: GOLIMUMAB
     Indication: Rheumatoid arthritis

REACTIONS (2)
  - Hypersensitivity [None]
  - Staphylococcal infection [None]
